FAERS Safety Report 10698758 (Version 2)
Quarter: 2015Q2

REPORT INFORMATION
  Report Type: Spontaneous
  Country: US (occurrence: US)
  Receive Date: 20150108
  Receipt Date: 20150522
  Transmission Date: 20150821
  Serious: No
  Sender: FDA-Public Use
  Company Number: US-GLAXOSMITHKLINE-US2014GSK044937

PATIENT
  Age: 57 Year
  Sex: Female

DRUGS (7)
  1. TANZEUM [Suspect]
     Active Substance: ALBIGLUTIDE
     Indication: TYPE 2 DIABETES MELLITUS
     Dosage: 30 MG, WE
     Dates: start: 201412
  2. TANZEUM [Suspect]
     Active Substance: ALBIGLUTIDE
     Indication: DIABETES MELLITUS
     Dosage: 30 MG, WE
     Route: 058
     Dates: start: 201410
  3. LEVEMIR [Concomitant]
     Active Substance: INSULIN DETEMIR
  4. GLUCOPHAGE [Concomitant]
     Active Substance: METFORMIN HYDROCHLORIDE
  5. ALTACE [Concomitant]
     Active Substance: RAMIPRIL
  6. ZOCOR [Concomitant]
     Active Substance: SIMVASTATIN
  7. NADOLOL. [Concomitant]
     Active Substance: NADOLOL

REACTIONS (5)
  - Visual acuity reduced [Unknown]
  - Medication error [Unknown]
  - Corrective lens user [Unknown]
  - Feeling abnormal [Recovered/Resolved]
  - Dizziness [Recovered/Resolved]

NARRATIVE: CASE EVENT DATE: 201503
